FAERS Safety Report 4348404-X (Version None)
Quarter: 2004Q2

REPORT INFORMATION
  Report Type: 
  Country: None (occurrence: None)
  Receive Date: 20040423
  Receipt Date: 20040323
  Transmission Date: 20050107
  Serious: Yes (Other)
  Sender: FDA-Public Use
  Company Number: 2004020342

PATIENT
  Sex: Female

DRUGS (10)
  1. DILANTIN INJ [Suspect]
     Indication: GRAND MAL CONVULSION
     Dosage: INTRAVENOUS
     Route: 042
     Dates: start: 20030701, end: 20030701
  2. VANCOMYCIN [Suspect]
     Indication: ILL-DEFINED DISORDER
     Dosage: 12 GRAM (Q2H), INTRAVENOUS
     Route: 042
     Dates: start: 20030701, end: 20030701
  3. PIP/TAZO (PIPERACILLIN SODIUM, TAZOBACTAM SODIUM) [Suspect]
     Indication: ILL-DEFINED DISORDER
     Dosage: 13.5 GRAM (Q8H), INTRAVENOUS
     Route: 042
     Dates: start: 20030701, end: 20030701
  4. ACYCLOVIR [Concomitant]
  5. AMIKACIN [Concomitant]
  6. CLINDAMYCIN HCL [Concomitant]
  7. FLUCONAZOLE [Concomitant]
  8. METRONIDAZOLE [Concomitant]
  9. ACETAMINOPHEN [Concomitant]
  10. BENZODIAZEPINE DERIVATIVES [Concomitant]

REACTIONS (2)
  - LINEAR IGA DISEASE [None]
  - RASH [None]
